FAERS Safety Report 8519443-X (Version None)
Quarter: 2012Q3

REPORT INFORMATION
  Report Type: 
  Country: None (occurrence: None)
  Receive Date: 20120718
  Receipt Date: 20120711
  Transmission Date: 20120928
  Serious: Yes (Hospitalization)
  Sender: FDA-Public Use
  Company Number: US-PFIZER INC-2012167589

PATIENT
  Age: 72 Year
  Sex: Female

DRUGS (1)
  1. ZITHROMAX [Suspect]
     Dosage: UNK

REACTIONS (3)
  - HEADACHE [None]
  - VOMITING [None]
  - URTICARIA [None]
